FAERS Safety Report 7150818-X (Version None)
Quarter: 2010Q4

REPORT INFORMATION
  Report Type: 
  Country: None (occurrence: None)
  Receive Date: 20101210
  Receipt Date: 20101203
  Transmission Date: 20110411
  Serious: Yes (Death, Hospitalization)
  Sender: FDA-Public Use
  Company Number: DE-ROCHE-724632

PATIENT
  Sex: Female
  Weight: 44 kg

DRUGS (5)
  1. BEVACIZUMAB [Suspect]
     Indication: BREAST CANCER
     Route: 065
     Dates: start: 20100727
  2. CAPECITABINE [Suspect]
     Indication: BREAST CANCER
     Dosage: DATE OF LAST DOSE PRIOR TO SAE: 16 AUGUST 2010
     Route: 065
     Dates: start: 20100727
  3. VINORELBINE [Suspect]
     Indication: BREAST CANCER
     Dosage: DATE OF LAST DOSE PRIOR TO SAE: 23 AUGUST 2010
     Route: 065
     Dates: start: 20100727
  4. VERGENTAN [Concomitant]
     Dates: start: 20100803
  5. OMEPRAZOLE [Concomitant]
     Dates: start: 20100803

REACTIONS (2)
  - ASTHENIA [None]
  - SUDDEN DEATH [None]
